FAERS Safety Report 6187673-0 (Version None)
Quarter: 2009Q2

REPORT INFORMATION
  Report Type: 
  Country: None (occurrence: None)
  Receive Date: 20090511
  Receipt Date: 20090427
  Transmission Date: 20091009
  Serious: Yes (Hospitalization)
  Sender: FDA-Public Use
  Company Number: 2009AL002747

PATIENT
  Age: 54 Year
  Sex: Male

DRUGS (3)
  1. DICLOFENAC SODIUM [Suspect]
     Indication: OSTEOARTHRITIS
     Dosage: 150 MG; QD; PO
     Route: 048
  2. PLAVIX [Concomitant]
  3. ACETYLSALICYLIC ACID [Concomitant]

REACTIONS (4)
  - DIZZINESS [None]
  - DUODENAL ULCER HAEMORRHAGE [None]
  - FATIGUE [None]
  - PALLOR [None]
